FAERS Safety Report 13730471 (Version 2)
Quarter: 2017Q3

REPORT INFORMATION
  Report Type: Spontaneous
  Country: JP (occurrence: JP)
  Receive Date: 20170707
  Receipt Date: 20170719
  Transmission Date: 20171127
  Serious: No
  Sender: FDA-Public Use
  Company Number: JP-PFIZER INC-2017289667

PATIENT
  Age: 5 Year
  Sex: Male
  Weight: 25 kg

DRUGS (1)
  1. ATARAX-P [Suspect]
     Active Substance: HYDROXYZINE HYDROCHLORIDE
     Indication: AGITATION
     Dosage: 25 MG, AS NEEDED WHEN EXCITED
     Route: 048
     Dates: start: 201611, end: 20170703

REACTIONS (1)
  - Abdominal pain upper [Recovering/Resolving]

NARRATIVE: CASE EVENT DATE: 201707
